FAERS Safety Report 4316889-0 (Version None)
Quarter: 2004Q1

REPORT INFORMATION
  Report Type: 
  Country: None (occurrence: None)
  Receive Date: 20040312
  Receipt Date: 20040312
  Transmission Date: 20041129
  Serious: Yes (Hospitalization)
  Sender: FDA-Public Use
  Company Number: None

PATIENT
  Age: 44 Year
  Sex: Female

DRUGS (2)
  1. CYCLOPHOSPHAMIDE [Suspect]
     Dosage: 2GM/M2 IV OVER 24 HRS X1
     Route: 042
     Dates: start: 20040217
  2. G-CSF [Suspect]
     Dosage: 600 MCG SQ QD
     Route: 058
     Dates: start: 20040219, end: 20040226

REACTIONS (2)
  - CATHETER RELATED COMPLICATION [None]
  - DEEP VEIN THROMBOSIS [None]
